FAERS Safety Report 5395508-9 (Version None)
Quarter: 2007Q3

REPORT INFORMATION
  Report Type: 
  Country: None (occurrence: None)
  Receive Date: 20070724
  Receipt Date: 20070709
  Transmission Date: 20080115
  Serious: Yes (Other)
  Sender: FDA-Public Use
  Company Number: JP-GENENTECH-244112

PATIENT
  Age: 76 Year
  Sex: Female

DRUGS (2)
  1. HERCEPTIN [Suspect]
     Indication: BREAST CANCER
     Dosage: 2 MG/KG, UNK
     Dates: start: 20060801
  2. PACLITAXEL [Concomitant]
     Indication: BREAST CANCER

REACTIONS (1)
  - NEPHRITIS INTERSTITIAL [None]
